FAERS Safety Report 9997761 (Version 1)
Quarter: 2014Q1

REPORT INFORMATION
  Report Type: Spontaneous
  Country: US (occurrence: US)
  Receive Date: 20140311
  Receipt Date: 20140311
  Transmission Date: 20141002
  Serious: No
  Sender: FDA-Public Use
  Company Number: US-PFIZER INC-2014068092

PATIENT
  Age: 66 Year
  Sex: Male

DRUGS (4)
  1. SUTENT [Suspect]
     Indication: RENAL CANCER
     Dosage: 50 MG, UNK
     Dates: start: 20140219
  2. BENAZEPRIL-HYDROCHLOROTHIAZIDE [Concomitant]
     Dosage: UNK
  3. HYDROCODONE-ACETAMINOPHEN [Concomitant]
     Dosage: UNK
  4. DOCUSATE SODIUM [Concomitant]
     Dosage: UNK

REACTIONS (2)
  - Dysgeusia [Unknown]
  - Fatigue [Unknown]
